FAERS Safety Report 16269837 (Version 1)
Quarter: 2019Q2

REPORT INFORMATION
  Report Type: Spontaneous
  Country: US (occurrence: US)
  Receive Date: 20190503
  Receipt Date: 20190503
  Transmission Date: 20190711
  Serious: Yes (Disabling, Other)
  Sender: FDA-Public Use
  Company Number: US-COVIS PHARMA B.V.-2019COV00120

PATIENT
  Age: 64 Year
  Sex: Female
  Weight: 117.91 kg

DRUGS (4)
  1. BETAPACE [Suspect]
     Active Substance: SOTALOL HYDROCHLORIDE
     Indication: ATRIAL FIBRILLATION
     Dosage: 80 MG, 2X/DAY
     Route: 048
     Dates: start: 20150622
  2. ELIQUIS [Concomitant]
     Active Substance: APIXABAN
  3. BETAPACE [Suspect]
     Active Substance: SOTALOL HYDROCHLORIDE
     Indication: HYPERTENSION
  4. VITAMIN D NOS [Concomitant]
     Active Substance: VITAMIN D NOS

REACTIONS (17)
  - Therapeutic product effect decreased [Not Recovered/Not Resolved]
  - Dyspepsia [Not Recovered/Not Resolved]
  - Atrial fibrillation [Unknown]
  - Tinnitus [Not Recovered/Not Resolved]
  - Muscle disorder [Unknown]
  - Confusional state [Recovering/Resolving]
  - Wheezing [Not Recovered/Not Resolved]
  - Vision blurred [Recovering/Resolving]
  - Peripheral swelling [Not Recovered/Not Resolved]
  - Arthropathy [Not Recovered/Not Resolved]
  - Cardioversion [Unknown]
  - Dry eye [Not Recovered/Not Resolved]
  - Meniscus injury [Not Recovered/Not Resolved]
  - Drug interaction [Not Recovered/Not Resolved]
  - Fatigue [Unknown]
  - Dizziness postural [Not Recovered/Not Resolved]
  - Insomnia [Not Recovered/Not Resolved]

NARRATIVE: CASE EVENT DATE: 201510
